FAERS Safety Report 8023725-8 (Version None)
Quarter: 2012Q1

REPORT INFORMATION
  Report Type: 
  Country: None (occurrence: None)
  Receive Date: 20120103
  Receipt Date: 20120103
  Transmission Date: 20120608
  Serious: No
  Sender: FDA-Public Use
  Company Number: None

PATIENT
  Age: 73 Year
  Sex: Male
  Weight: 78 kg

DRUGS (1)
  1. KETOCONAZOLE [Suspect]
     Indication: PROSTATE CANCER
     Dosage: 400 MG TID PO
     Route: 048
     Dates: start: 20110829, end: 20110907

REACTIONS (2)
  - NAUSEA [None]
  - VOMITING [None]
